FAERS Safety Report 7406727-1 (Version None)
Quarter: 2011Q2

REPORT INFORMATION
  Report Type: 
  Country: None (occurrence: None)
  Receive Date: 20110411
  Receipt Date: 20110406
  Transmission Date: 20111010
  Serious: Yes (Life-Threatening, Hospitalization)
  Sender: FDA-Public Use
  Company Number: CH-ASTRAZENECA-2011SE19337

PATIENT
  Age: 33 Year
  Sex: Female
  Weight: 95 kg

DRUGS (11)
  1. CIPRALEX [Suspect]
     Route: 048
  2. DALMADORM [Suspect]
     Dosage: 750 MGS TOTAL
     Route: 048
     Dates: start: 20110214, end: 20110214
  3. TEMESTA [Suspect]
     Route: 048
  4. DALMADORM [Suspect]
     Route: 048
  5. LISINOPRIL [Suspect]
     Dosage: 350 MGS TOTAL
     Route: 048
     Dates: start: 20110214, end: 20110214
  6. SEROQUEL [Suspect]
     Route: 048
  7. CIPRALEX [Suspect]
     Dosage: 1.4 GMS TOTAL
     Route: 048
     Dates: start: 20110214, end: 20110214
  8. SEROQUEL [Suspect]
     Dosage: 52 GMS TOTAL
     Route: 048
     Dates: start: 20110214, end: 20110214
  9. SORTIS [Suspect]
     Dosage: 8 GMS TOTAL
     Route: 048
     Dates: start: 20110214, end: 20110214
  10. TEMESTA [Suspect]
     Dosage: 50 MGS TOTAL
     Route: 048
     Dates: start: 20110214, end: 20110214
  11. POTASSIUM [Suspect]
     Dosage: 470 MMOL
     Route: 048
     Dates: start: 20110214, end: 20110214

REACTIONS (11)
  - LOSS OF CONSCIOUSNESS [None]
  - RHABDOMYOLYSIS [None]
  - DIABETIC COMPLICATION [None]
  - VOMITING [None]
  - MYDRIASIS [None]
  - TACHYCARDIA [None]
  - METABOLIC ACIDOSIS [None]
  - HYPERTHERMIA [None]
  - INTENTIONAL OVERDOSE [None]
  - HYPOTENSION [None]
  - HYPERKALAEMIA [None]
